FAERS Safety Report 12957805 (Version 1)
Quarter: 2016Q4

REPORT INFORMATION
  Report Type: Report from Study
  Country: None (occurrence: US)
  Receive Date: 20161118
  Receipt Date: 20161118
  Transmission Date: 20170207
  Serious: Yes (Hospitalization)
  Sender: FDA-Public Use
  Company Number: US-ABBVIE-16P-163-1781995-00

PATIENT
  Age: 57 Year
  Sex: Male

DRUGS (1)
  1. DUOPA [Suspect]
     Active Substance: CARBIDOPA\LEVODOPA
     Indication: PARKINSON^S DISEASE
     Route: 050
     Dates: start: 20160912

REACTIONS (3)
  - Unintentional medical device removal [Unknown]
  - Device connection issue [Unknown]
  - Chemical burn of skin [Unknown]

NARRATIVE: CASE EVENT DATE: 20161110
